FAERS Safety Report 24097106 (Version 1)
Quarter: 2024Q3

REPORT INFORMATION
  Report Type: Spontaneous
  Country: US (occurrence: US)
  Receive Date: 20240716
  Receipt Date: 20240716
  Transmission Date: 20241016
  Serious: Yes (Other)
  Sender: DR REDDYS
  Company Number: None

PATIENT
  Age: 64 Year
  Sex: Female

DRUGS (8)
  1. GEMCITABINE [Suspect]
     Active Substance: GEMCITABINE
     Indication: Diffuse large B-cell lymphoma stage IV
     Dosage: ADDITIONAL INFORMATION ON DRUG: SALVAGE CHEMO-IMMUNOTHERAPY WITH SECOND-LINE
  2. GEMCITABINE [Suspect]
     Active Substance: GEMCITABINE
     Indication: Neoplasm recurrence
  3. RITUXIMAB [Suspect]
     Active Substance: RITUXIMAB
     Indication: Neoplasm recurrence
     Dosage: ADDITIONAL INFORMATION ON DRUG: SALVAGE CHEMO-IMMUNOTHERAPY WITH SECOND-LINE
  4. RITUXIMAB [Suspect]
     Active Substance: RITUXIMAB
     Indication: Diffuse large B-cell lymphoma stage IV
  5. CARBOPLATIN [Suspect]
     Active Substance: CARBOPLATIN
     Indication: Neoplasm recurrence
     Dosage: ADDITIONAL INFORMATION ON DRUG: SALVAGE CHEMO-IMMUNOTHERAPY WITH SECOND-LINE
  6. CARBOPLATIN [Suspect]
     Active Substance: CARBOPLATIN
     Indication: Diffuse large B-cell lymphoma stage IV
  7. DEXAMETHASONE [Suspect]
     Active Substance: DEXAMETHASONE
     Indication: Neoplasm recurrence
     Dosage: ADDITIONAL INFORMATION ON DRUG: SALVAGE CHEMO-IMMUNOTHERAPY WITH SECOND-LINE
  8. DEXAMETHASONE [Suspect]
     Active Substance: DEXAMETHASONE
     Indication: Diffuse large B-cell lymphoma stage IV

REACTIONS (1)
  - Delirium [Unknown]
